FAERS Safety Report 15819646 (Version 1)
Quarter: 2019Q1

REPORT INFORMATION
  Report Type: Spontaneous
  Country: GB (occurrence: GB)
  Receive Date: 20190114
  Receipt Date: 20190114
  Transmission Date: 20190417
  Serious: Yes (Other)
  Sender: FDA-Public Use
  Company Number: GB-BAUSCH-BL-2019-000672

PATIENT

DRUGS (2)
  1. METFORMIN [Suspect]
     Active Substance: METFORMIN HYDROCHLORIDE
     Indication: TYPE 2 DIABETES MELLITUS
     Dosage: 500 MG, (2 WITH BREAKFAST AND 2 WITH EVENING MEAL).
     Route: 065
  2. NOVOMIX [Suspect]
     Active Substance: INSULIN ASPART
     Indication: TYPE 2 DIABETES MELLITUS
     Dosage: NOVOMIX 30 INSULIN INJECTIONS (INJECTED TWICE PER DAY)
     Route: 042

REACTIONS (2)
  - Vitamin B12 deficiency [Unknown]
  - Pernicious anaemia [Unknown]
